FAERS Safety Report 9173498 (Version 2)
Quarter: 2013Q1

REPORT INFORMATION
  Report Type: Spontaneous
  Country: NZ (occurrence: None)
  Receive Date: 20130325
  Receipt Date: 20130325
  Transmission Date: 20140127
  Serious: Yes (Hospitalization)
  Sender: FDA-Public Use
  Company Number: INT_00226_2013

PATIENT
  Age: 82 Year
  Sex: Male

DRUGS (2)
  1. CEFEPIME [Suspect]
     Indication: PRODUCT USED FOR UNKNOWN INDICATION
     Dosage: (2 G 1X/12 HOURS INTRAVENOUS (NOT OTHERWISE SPECIFIED)
     Route: 042
  2. ROXITHROMYCIN (UNKNOWN) [Concomitant]

REACTIONS (12)
  - General physical health deterioration [None]
  - Septic shock [None]
  - Organ failure [None]
  - Hypoxia [None]
  - Renal failure acute [None]
  - Continuous haemodiafiltration [None]
  - Clonic convulsion [None]
  - Blood magnesium decreased [None]
  - Toxicity to various agents [None]
  - Blood glucose increased [None]
  - Cerebral atrophy [None]
  - Neurotoxicity [None]
